FAERS Safety Report 25886841 (Version 1)
Quarter: 2025Q4

REPORT INFORMATION
  Report Type: Spontaneous
  Country: US (occurrence: None)
  Receive Date: 20251006
  Receipt Date: 20251006
  Transmission Date: 20260117
  Serious: No
  Sender: FDA-CTU
  Company Number: None

PATIENT

DRUGS (1)
  1. TAFLUPROST [Suspect]
     Active Substance: TAFLUPROST

REACTIONS (2)
  - Hordeolum [None]
  - Headache [None]
